FAERS Safety Report 9337510 (Version 2)
Quarter: 2013Q3

REPORT INFORMATION
  Report Type: Spontaneous
  Country: US (occurrence: US)
  Receive Date: 20130607
  Receipt Date: 20130730
  Transmission Date: 20140515
  Serious: Yes (Hospitalization)
  Sender: FDA-Public Use
  Company Number: US-ELI_LILLY_AND_COMPANY-US201305004435

PATIENT
  Age: 64 Year
  Sex: Female
  Weight: 76.19 kg

DRUGS (8)
  1. EFFIENT [Suspect]
     Dosage: UNK
     Dates: start: 20120229
  2. ISOSORBIDE [Concomitant]
  3. PRAVASTATIN [Concomitant]
  4. LASIX [Concomitant]
  5. COREG [Concomitant]
  6. ASA [Concomitant]
  7. LISINOPRIL [Concomitant]
  8. AMLODIPINE [Concomitant]

REACTIONS (5)
  - Coronary artery disease [Recovered/Resolved]
  - Dyspnoea [Recovered/Resolved]
  - Acute myocardial infarction [Unknown]
  - Device occlusion [Unknown]
  - Ventricular failure [Unknown]
